FAERS Safety Report 13939135 (Version 2)
Quarter: 2017Q3

REPORT INFORMATION
  Report Type: Spontaneous
  Country: US (occurrence: US)
  Receive Date: 20170906
  Receipt Date: 20170927
  Transmission Date: 20171127
  Serious: Yes (Hospitalization, Other)
  Sender: FDA-Public Use
  Company Number: US-BRISTOL-MYERS SQUIBB COMPANY-BMS-2017-077866

PATIENT
  Sex: Male
  Weight: 99.77 kg

DRUGS (1)
  1. YERVOY [Suspect]
     Active Substance: IPILIMUMAB
     Indication: MALIGNANT MELANOMA
     Dosage: 1048 MG, Q3WK
     Route: 042
     Dates: start: 20170201, end: 20170412

REACTIONS (5)
  - Hypothalamo-pituitary disorder [Unknown]
  - Gait inability [Unknown]
  - Neuropathy peripheral [Unknown]
  - Prescribed overdose [Unknown]
  - Hypoaesthesia [Unknown]
